FAERS Safety Report 4725201-4 (Version None)
Quarter: 2005Q3

REPORT INFORMATION
  Report Type: 
  Country: None (occurrence: None)
  Receive Date: 20050725
  Receipt Date: 20050711
  Transmission Date: 20060218
  Serious: Yes (Hospitalization)
  Sender: FDA-Public Use
  Company Number: 163-20785-05070171

PATIENT
  Age: 76 Year
  Sex: Female

DRUGS (1)
  1. THALOMID [Suspect]
     Indication: BILE DUCT CANCER
     Dosage: 400 MG, DAILY, ORAL
     Route: 048
     Dates: start: 20040205

REACTIONS (2)
  - CARDIAC DISORDER [None]
  - CARDIAC PACEMAKER INSERTION [None]
